FAERS Safety Report 7274239-4 (Version None)
Quarter: 2011Q1

REPORT INFORMATION
  Report Type: 
  Country: None (occurrence: None)
  Receive Date: 20110204
  Receipt Date: 20110126
  Transmission Date: 20110831
  Serious: No
  Sender: FDA-Public Use
  Company Number: US-BIOGENIDEC-2011BI003646

PATIENT
  Sex: Female

DRUGS (2)
  1. AMPYRA [Concomitant]
     Dates: start: 20101101
  2. AVONEX [Suspect]
     Indication: MULTIPLE SCLEROSIS
     Route: 030
     Dates: start: 19970702

REACTIONS (2)
  - INJECTION SITE PAIN [None]
  - SKIN NECROSIS [None]
